FAERS Safety Report 21250790 (Version 1)
Quarter: 2022Q3

REPORT INFORMATION
  Report Type: Spontaneous
  Country: US (occurrence: US)
  Receive Date: 20220824
  Receipt Date: 20220824
  Transmission Date: 20221027
  Serious: No
  Sender: FDA-Public Use
  Company Number: US-JNJFOC-20220811211

PATIENT
  Sex: Male
  Weight: 13.166 kg

DRUGS (1)
  1. CHILDRENS ZYRTEC [Suspect]
     Active Substance: CETIRIZINE HYDROCHLORIDE
     Indication: Product used for unknown indication
     Dosage: DOCTOR TOLD TO GIVE HALF A ML OF DOSE AND WAS ACCIDENTALLY GIVEN FIVE TIMES THAT AMOUNT
     Route: 065

REACTIONS (1)
  - Incorrect dose administered [Unknown]
